FAERS Safety Report 4404131-1 (Version None)
Quarter: 2004Q3

REPORT INFORMATION
  Report Type: 
  Country: None (occurrence: None)
  Receive Date: 20040722
  Receipt Date: 20040204
  Transmission Date: 20050211
  Serious: No
  Sender: FDA-Public Use
  Company Number: US-BRISTOL-MYERS SQUIBB COMPANY-12497228

PATIENT
  Age: 28 Year
  Sex: Female
  Weight: 58 kg

DRUGS (6)
  1. CEENU [Suspect]
     Indication: BRAIN NEOPLASM
     Route: 048
     Dates: start: 20030401, end: 20031229
  2. VINCRISTINE [Suspect]
     Indication: BRAIN NEOPLASM
     Dosage: DAYS 9 AND 29
     Route: 042
  3. PROCARBAZINE [Suspect]
     Indication: BRAIN NEOPLASM
     Dosage: DAYS 14-28
     Route: 048
  4. ZOLOFT [Concomitant]
     Dates: start: 20030101, end: 20030101
  5. XANAX [Concomitant]
     Dates: start: 20030101, end: 20030101
  6. NEXIUM [Concomitant]
     Dates: start: 20030101, end: 20030101

REACTIONS (1)
  - DRUG EXPOSURE DURING PREGNANCY [None]
